FAERS Safety Report 7246522-X (Version None)
Quarter: 2011Q1

REPORT INFORMATION
  Report Type: 
  Country: None (occurrence: None)
  Receive Date: 20110127
  Receipt Date: 20110119
  Transmission Date: 20110831
  Serious: Yes (Hospitalization)
  Sender: FDA-Public Use
  Company Number: US-US-EMD SERONO, INC.-7037092

PATIENT
  Sex: Female
  Weight: 73 kg

DRUGS (4)
  1. IBUPROFEN [Concomitant]
  2. REBIF [Suspect]
     Indication: MULTIPLE SCLEROSIS
     Route: 058
     Dates: start: 20100720
  3. FIORINAL [Concomitant]
     Indication: HEADACHE
  4. TYLENOL-500 [Concomitant]

REACTIONS (6)
  - PYELONEPHRITIS [None]
  - CYSTITIS [None]
  - SEPSIS [None]
  - PHARYNGITIS STREPTOCOCCAL [None]
  - INFLUENZA LIKE ILLNESS [None]
  - KIDNEY ENLARGEMENT [None]
